FAERS Safety Report 12762553 (Version 1)
Quarter: 2016Q3

REPORT INFORMATION
  Report Type: Spontaneous
  Country: DK (occurrence: FR)
  Receive Date: 20160920
  Receipt Date: 20160920
  Transmission Date: 20161109
  Serious: Yes (Hospitalization)
  Sender: FDA-Public Use
  Company Number: FR-FRI-1000087570

PATIENT
  Age: 56 Year
  Sex: Male

DRUGS (6)
  1. LOPERAMIDE [Suspect]
     Active Substance: LOPERAMIDE
     Indication: DIARRHOEA
     Dosage: 6 MG
     Route: 048
     Dates: end: 20160809
  2. LEMOXIL ROCHE [Suspect]
     Active Substance: BROMAZEPAM
     Indication: ANXIETY
     Dosage: DAILY DOSE NOT REPORTED
     Route: 048
  3. TANGANIL [Suspect]
     Active Substance: ACETYLLEUCINE
     Indication: VERTIGO
     Dosage: 1500 MG
     Route: 048
     Dates: end: 20160809
  4. DOLIPRANE [Suspect]
     Active Substance: ACETAMINOPHEN
     Indication: PRODUCT USED FOR UNKNOWN INDICATION
     Dosage: DAILY DOSE NOT REPORTED
     Route: 048
     Dates: end: 20160809
  5. ESCITALOPRAM [Suspect]
     Active Substance: ESCITALOPRAM OXALATE
     Indication: ANXIETY
     Dosage: 5 MG
     Route: 048
     Dates: start: 20160726, end: 20160809
  6. KENACORT [Suspect]
     Active Substance: TRIAMCINOLONE
     Indication: PRODUCT USED FOR UNKNOWN INDICATION
     Dosage: DAILY DOSE NOT REPORTED
     Route: 065
     Dates: start: 20160803, end: 20160803

REACTIONS (1)
  - Seizure [Recovered/Resolved]

NARRATIVE: CASE EVENT DATE: 20160809
